FAERS Safety Report 19284889 (Version 1)
Quarter: 2021Q2

REPORT INFORMATION
  Report Type: Spontaneous
  Country: US (occurrence: US)
  Receive Date: 20210521
  Receipt Date: 20210521
  Transmission Date: 20210717
  Serious: Yes (Hospitalization)
  Sender: FDA-Public Use
  Company Number: US-MYLANLABS-2021M1029300

PATIENT
  Age: 56 Year
  Sex: Female

DRUGS (6)
  1. LIDOCAINE. [Suspect]
     Active Substance: LIDOCAINE
     Indication: CHEST PAIN
  2. GLYCERYL TRINITRATE [Suspect]
     Active Substance: NITROGLYCERIN
     Indication: CHEST PAIN
  3. MORPHINE [Suspect]
     Active Substance: MORPHINE
     Indication: CHEST PAIN
  4. LIDOCAINE. [Suspect]
     Active Substance: LIDOCAINE
     Indication: BUNDLE BRANCH BLOCK LEFT
     Dosage: UNK
     Route: 065
  5. GLYCERYL TRINITRATE [Suspect]
     Active Substance: NITROGLYCERIN
     Indication: BUNDLE BRANCH BLOCK LEFT
     Dosage: UNK
     Route: 065
  6. MORPHINE [Suspect]
     Active Substance: MORPHINE
     Indication: BUNDLE BRANCH BLOCK LEFT
     Dosage: UNK
     Route: 065

REACTIONS (1)
  - Drug ineffective [Unknown]
